FAERS Safety Report 7806451-7 (Version None)
Quarter: 2011Q4

REPORT INFORMATION
  Report Type: 
  Country: None (occurrence: None)
  Receive Date: 20111011
  Receipt Date: 20111003
  Transmission Date: 20120403
  Serious: Yes (Hospitalization, Other)
  Sender: FDA-Public Use
  Company Number: US-PFIZER INC-2011241245

PATIENT
  Sex: Female

DRUGS (2)
  1. MEDROL [Suspect]
     Dosage: UNK
  2. ENBREL [Suspect]
     Indication: RHEUMATOID ARTHRITIS
     Dosage: 25 MG, QWK
     Dates: start: 20010101, end: 20060101

REACTIONS (4)
  - RHEUMATOID ARTHRITIS [None]
  - SOMNOLENCE [None]
  - UPPER RESPIRATORY TRACT INFECTION [None]
  - HYPERSENSITIVITY [None]
